FAERS Safety Report 6469710-9 (Version None)
Quarter: 2009Q4

REPORT INFORMATION
  Report Type: 
  Country: None (occurrence: None)
  Receive Date: 20091203
  Receipt Date: 20071112
  Transmission Date: 20100525
  Serious: Yes (Hospitalization)
  Sender: FDA-Public Use
  Company Number: US-ELI_LILLY_AND_COMPANY-US200710001951

PATIENT
  Age: 14 Year
  Sex: Female

DRUGS (4)
  1. HUMULIN R [Suspect]
  2. HUMULIN R [Suspect]
     Dosage: 1600 U, UNK
  3. LANTUS [Concomitant]
  4. NOVOLOG [Concomitant]

REACTIONS (3)
  - BLOOD GLUCOSE INCREASED [None]
  - BLOOD KETONE BODY [None]
  - INSULIN RESISTANCE SYNDROME [None]
